FAERS Safety Report 6332953-9 (Version None)
Quarter: 2009Q3

REPORT INFORMATION
  Report Type: 
  Country: None (occurrence: None)
  Receive Date: 20090828
  Receipt Date: 20090821
  Transmission Date: 20100115
  Serious: Yes (Other)
  Sender: FDA-Public Use
  Company Number: PHHY2009CA35605

PATIENT
  Sex: Male

DRUGS (1)
  1. SANDOSTATIN [Suspect]
     Indication: LYMPHOMA
     Dosage: UNK, BID
     Route: 058
     Dates: start: 20090820

REACTIONS (1)
  - THORACIC CAVITY DRAINAGE [None]
